FAERS Safety Report 4644672-5 (Version None)
Quarter: 2005Q2

REPORT INFORMATION
  Report Type: 
  Country: None (occurrence: None)
  Receive Date: 20050422
  Receipt Date: 20050405
  Transmission Date: 20051028
  Serious: Yes (Hospitalization)
  Sender: FDA-Public Use
  Company Number: 2005000651

PATIENT
  Age: 87 Year
  Sex: Female

DRUGS (7)
  1. TARCEVA [Suspect]
     Indication: NON-SMALL CELL LUNG CANCER
     Dosage: 150 MG (QD), ORAL
     Route: 048
     Dates: start: 20050309, end: 20050328
  2. DIOVAN [Concomitant]
  3. ZOLOFT [Concomitant]
  4. ASPIRIN [Concomitant]
  5. NORBASC (AMLODIPINE BESILATE) [Concomitant]
  6. EXTRA STRENGTH TYLENOL [Concomitant]
  7. MULTIVITAMIN [Concomitant]

REACTIONS (3)
  - DUODENAL ULCER [None]
  - ENTERITIS [None]
  - FAECES DISCOLOURED [None]
